FAERS Safety Report 4815474-1 (Version None)
Quarter: 2005Q4

REPORT INFORMATION
  Report Type: 
  Country: None (occurrence: None)
  Receive Date: 20051028
  Receipt Date: 20051028
  Transmission Date: 20060501
  Serious: Yes (Death, Disabling)
  Sender: FDA-Public Use
  Company Number: None

PATIENT
  Age: 25 Year
  Sex: Female
  Weight: 113.5 kg

DRUGS (1)
  1. ORTHO-NOVUM ORTHO-MCNEIL PHARMACEUTICALS [Suspect]
     Indication: CONTRACEPTION
     Dosage: 1 TABLET ONCE DAILY PO
     Route: 048
     Dates: start: 20041001, end: 20051004

REACTIONS (2)
  - CARDIO-RESPIRATORY ARREST [None]
  - CEREBRAL VENOUS THROMBOSIS [None]
